FAERS Safety Report 9262622 (Version 3)
Quarter: 2013Q2

REPORT INFORMATION
  Report Type: Other
  Country: US (occurrence: US)
  Receive Date: 20130430
  Receipt Date: 20130624
  Transmission Date: 20140414
  Serious: Yes (Other)
  Sender: FDA-Public Use
  Company Number: US-SHIRE-ALL1-2013-02629

PATIENT
  Age: 10 Year
  Sex: Male
  Weight: 34 kg

DRUGS (6)
  1. ELAPRASE [Suspect]
     Indication: MUCOPOLYSACCHARIDOSIS II
     Dosage: 18 MG, 1X/WEEK (3 VIALS)
     Route: 041
     Dates: start: 20080412
  2. CLONIDINE [Concomitant]
     Indication: PRODUCT USED FOR UNKNOWN INDICATION
     Dosage: 0.1 MG, 3X/DAY:TID
     Route: 048
  3. MIRTAZAPINE [Concomitant]
     Indication: PRODUCT USED FOR UNKNOWN INDICATION
     Dosage: 7.5 MG, 1X/DAY:QD (AT BEDTIME)
     Route: 048
  4. RISPERDAL [Concomitant]
     Indication: PRODUCT USED FOR UNKNOWN INDICATION
     Dosage: 0.5 MG, 2X/DAY:BID
     Route: 048
  5. RISPERDAL [Concomitant]
     Dosage: 1 MG, 1X/DAY:QD (BEDTIME)
     Route: 048
  6. MELATONIN [Concomitant]
     Indication: SLEEP DISORDER
     Dosage: 5 MG, 1X/DAY:QD
     Route: 048

REACTIONS (2)
  - Medical device complication [Recovered/Resolved]
  - Carpal tunnel syndrome [Not Recovered/Not Resolved]
